FAERS Safety Report 4595013-3 (Version None)
Quarter: 2005Q1

REPORT INFORMATION
  Report Type: 
  Country: None (occurrence: None)
  Receive Date: 20050223
  Receipt Date: 20050104
  Transmission Date: 20050727
  Serious: Yes (Death, Hospitalization)
  Sender: FDA-Public Use
  Company Number: 2005001682

PATIENT
  Age: 78 Year
  Sex: Female

DRUGS (4)
  1. CELEBREX [Suspect]
     Indication: OSTEOARTHRITIS
     Dosage: 40 MG 9200 MG, 2 IN 1 D), ORAL
     Route: 048
     Dates: start: 20040101, end: 20041201
  2. CLOPIDOGREL BISULFATE [Concomitant]
  3. TERBUTALINE SULFATE [Concomitant]
  4. BUFLOMEDIL (BUFLOMEDIL) [Concomitant]

REACTIONS (5)
  - CEREBELLAR SYNDROME [None]
  - CEREBROVASCULAR ACCIDENT [None]
  - SUDDEN DEATH [None]
  - VERTIGO [None]
  - VOMITING [None]
